FAERS Safety Report 14624195 (Version 1)
Quarter: 2018Q1

REPORT INFORMATION
  Report Type: Report from Study
  Country: CO (occurrence: CO)
  Receive Date: 20180312
  Receipt Date: 20180312
  Transmission Date: 20180509
  Serious: Yes (Hospitalization)
  Sender: FDA-Public Use
  Company Number: CO-ROCHE-2085594

PATIENT
  Age: 18 Year
  Sex: Female
  Weight: 33 kg

DRUGS (1)
  1. XOLAIR [Suspect]
     Active Substance: OMALIZUMAB
     Indication: CHRONIC SPONTANEOUS URTICARIA
     Route: 058
     Dates: start: 20180224

REACTIONS (6)
  - Erythema [Unknown]
  - Dyspnoea [Unknown]
  - Inflammation [Unknown]
  - Chest pain [Unknown]
  - Malaise [Unknown]
  - Painful respiration [Unknown]

NARRATIVE: CASE EVENT DATE: 20180224
